FAERS Safety Report 9707379 (Version 1)
Quarter: 2013Q4

REPORT INFORMATION
  Report Type: Spontaneous
  Country: US (occurrence: US)
  Receive Date: 20131125
  Receipt Date: 20131125
  Transmission Date: 20140711
  Serious: No
  Sender: FDA-Public Use
  Company Number: US-GLAXOSMITHKLINE-A1041054A

PATIENT
  Age: 71 Year
  Sex: Female

DRUGS (6)
  1. FLOVENT [Suspect]
     Indication: ASTHMA
     Route: 055
  2. AZMACORT [Suspect]
     Indication: ASTHMA
     Route: 055
  3. ASMANEX [Suspect]
     Indication: ASTHMA
     Route: 055
  4. SYNTHROID [Concomitant]
     Indication: THYROID DISORDER
  5. AMLODIPINE [Concomitant]
     Indication: HYPERTENSION
  6. OMEPRAZOLE [Concomitant]
     Indication: GASTROOESOPHAGEAL REFLUX DISEASE

REACTIONS (4)
  - Oral mucosal eruption [Recovered/Resolved]
  - Cough [Recovered/Resolved]
  - Asthma [Recovering/Resolving]
  - Expired drug administered [Unknown]
